FAERS Safety Report 10146819 (Version 1)
Quarter: 2014Q2

REPORT INFORMATION
  Report Type: Spontaneous
  Country: US (occurrence: None)
  Receive Date: 20140430
  Receipt Date: 20140430
  Transmission Date: 20141212
  Serious: Yes (Hospitalization)
  Sender: FDA-Public Use
  Company Number: None

PATIENT
  Age: 86 Year
  Sex: Male

DRUGS (17)
  1. CEFTRIAXONE [Suspect]
     Indication: ENDOCARDITIS
     Route: 042
     Dates: start: 20131101, end: 20131201
  2. ALLOPURINOL [Concomitant]
  3. AMIODARONE [Concomitant]
  4. FINASTERIDE [Concomitant]
  5. FUROSEMIDE [Concomitant]
  6. GAMFIBROZIL [Concomitant]
  7. LORATADINE [Concomitant]
  8. METOPROLOL TARTRATE [Concomitant]
  9. OMEPRAZOLE [Concomitant]
  10. POTASSIUM [Concomitant]
  11. PRAVASTATIN [Concomitant]
  12. MULTIVITAMIN [Concomitant]
  13. THIAMINE [Concomitant]
  14. WARFARIN [Concomitant]
  15. TAMSULOSIN [Concomitant]
  16. METOLAZONE [Concomitant]
  17. DEXTROMETNORPHAN [Concomitant]

REACTIONS (2)
  - Rash [None]
  - Pruritus [None]
